FAERS Safety Report 5658135-1 (Version None)
Quarter: 2008Q1

REPORT INFORMATION
  Report Type: 
  Country: None (occurrence: None)
  Receive Date: 20080310
  Receipt Date: 20061220
  Transmission Date: 20080703
  Serious: No
  Sender: FDA-Public Use
  Company Number: US-BAYER-200615065BCC

PATIENT
  Age: 88 Year
  Sex: Female
  Weight: 70 kg

DRUGS (9)
  1. ALEVE [Suspect]
     Indication: PAIN
     Dosage: UNIT DOSE: 220 MG
     Route: 048
  2. LISINOPRIL [Concomitant]
  3. NAMENDA [Concomitant]
  4. HYDROCHLOROTHIAZIDE [Concomitant]
  5. ARICEPT [Concomitant]
  6. NORVASC [Concomitant]
  7. QUALITY PLUS ASPIRIN [Concomitant]
  8. NOVOLIN 70/30 [Concomitant]
  9. CENTRUM SILVER [Concomitant]

REACTIONS (1)
  - RASH [None]
